FAERS Safety Report 6554570-8 (Version None)
Quarter: 2010Q1

REPORT INFORMATION
  Report Type: 
  Country: None (occurrence: None)
  Receive Date: 20100122
  Receipt Date: 20100111
  Transmission Date: 20100710
  Serious: Yes (Death)
  Sender: FDA-Public Use
  Company Number: 004779

PATIENT
  Age: 23 Year
  Sex: Male

DRUGS (5)
  1. ALPRAZOLAM [Suspect]
  2. METHADONE HCL [Suspect]
  3. ACEPROMAZINE [Suspect]
  4. CITALOPRAM [Concomitant]
  5. LSD [Concomitant]

REACTIONS (2)
  - DRUG ABUSE [None]
  - POISONING [None]
